FAERS Safety Report 7786354-7 (Version None)
Quarter: 2011Q3

REPORT INFORMATION
  Report Type: 
  Country: None (occurrence: None)
  Receive Date: 20110929
  Receipt Date: 20110920
  Transmission Date: 20111222
  Serious: Yes (Hospitalization)
  Sender: FDA-Public Use
  Company Number: US-JNJFOC-20110908936

PATIENT
  Sex: Male
  Weight: 69.4 kg

DRUGS (4)
  1. MESALAMINE [Concomitant]
     Route: 048
  2. METHOTREXATE [Concomitant]
  3. INFLIXIMAB, RECOMBINANT [Suspect]
     Indication: CROHN'S DISEASE
     Route: 042
     Dates: start: 20110527
  4. INFLIXIMAB, RECOMBINANT [Suspect]
     Route: 042
     Dates: start: 20101004

REACTIONS (2)
  - ANAL FISTULA [None]
  - CROHN'S DISEASE [None]
